FAERS Safety Report 16356414 (Version 1)
Quarter: 2019Q2

REPORT INFORMATION
  Report Type: Spontaneous
  Country: GB (occurrence: GB)
  Receive Date: 20190527
  Receipt Date: 20190527
  Transmission Date: 20190711
  Serious: Yes (Other)
  Sender: FDA-Public Use
  Company Number: GB-TEVA-2019-GB-1055558

PATIENT
  Age: 64 Year
  Sex: Female

DRUGS (1)
  1. HYDROCORTISONE. [Suspect]
     Active Substance: HYDROCORTISONE
     Indication: ECZEMA
     Dosage: SHE HAD BEEN APPLYING HYDROCORTISONE DAILY FOR PREVIOUS 3-4 MONTHS.
     Route: 061

REACTIONS (1)
  - Glaucoma [Recovering/Resolving]
